FAERS Safety Report 8136956-3 (Version None)
Quarter: 2012Q1

REPORT INFORMATION
  Report Type: 
  Country: None (occurrence: None)
  Receive Date: 20120214
  Receipt Date: 20120206
  Transmission Date: 20120608
  Serious: Yes (Hospitalization)
  Sender: FDA-Public Use
  Company Number: BR-ASTRAZENECA-2012SE08197

PATIENT
  Age: 58 Year
  Sex: Female
  Weight: 88 kg

DRUGS (6)
  1. LISADOR [Concomitant]
     Indication: POSTOPERATIVE CARE
     Route: 048
  2. LOSARTAN POTASSIUM [Concomitant]
     Indication: HYPERTENSION
  3. NEXIUM [Suspect]
     Indication: GASTROOESOPHAGEAL REFLUX DISEASE
     Route: 048
     Dates: start: 20120204
  4. NIMESULIDE [Concomitant]
     Indication: POSTOPERATIVE CARE
     Route: 048
  5. ATENOLOL [Suspect]
     Indication: TACHYCARDIA
     Route: 050
     Dates: start: 20110101
  6. DIOSMIN [Concomitant]
     Indication: POSTOPERATIVE CARE
     Route: 048

REACTIONS (5)
  - TENDON DISORDER [None]
  - PAIN IN EXTREMITY [None]
  - GASTROOESOPHAGEAL REFLUX DISEASE [None]
  - TENDON PAIN [None]
  - HEADACHE [None]
